FAERS Safety Report 25232172 (Version 3)
Quarter: 2025Q2

REPORT INFORMATION
  Report Type: Report from Study
  Country: US (occurrence: US)
  Receive Date: 20250423
  Receipt Date: 20250618
  Transmission Date: 20250716
  Serious: Yes (Other)
  Sender: MALLINCKRODT
  Company Number: US-MALLINCKRODT-MNK202501502

PATIENT
  Age: 44 Year
  Sex: Female
  Weight: 232 kg

DRUGS (2)
  1. CORTICOTROPIN [Suspect]
     Active Substance: CORTICOTROPIN
     Indication: Polymyositis
     Dosage: 80 UNITS
     Dates: start: 2024
  2. CORTICOTROPIN [Suspect]
     Active Substance: CORTICOTROPIN
     Dosage: 40 UNITS

REACTIONS (7)
  - Syncope [Recovering/Resolving]
  - Type 2 diabetes mellitus [Recovering/Resolving]
  - Muscle spasms [Unknown]
  - Mobility decreased [Unknown]
  - Thinking abnormal [Unknown]
  - Weight decreased [Unknown]
  - Muscular weakness [Unknown]

NARRATIVE: CASE EVENT DATE: 20250101
